FAERS Safety Report 5168063-6 (Version None)
Quarter: 2006Q4

REPORT INFORMATION
  Report Type: 
  Country: None (occurrence: None)
  Receive Date: 20061208
  Receipt Date: 20060718
  Transmission Date: 20070319
  Serious: No
  Sender: FDA-Public Use
  Company Number: US-GLAXOSMITHKLINE-A0612666A

PATIENT

DRUGS (2)
  1. AVANDAMET [Suspect]
     Route: 048
  2. UNKNOWN [Concomitant]

REACTIONS (2)
  - BLOOD PRESSURE INCREASED [None]
  - OEDEMA [None]
